FAERS Safety Report 6532559-2 (Version None)
Quarter: 2010Q1

REPORT INFORMATION
  Report Type: 
  Country: None (occurrence: None)
  Receive Date: 20100111
  Receipt Date: 20100104
  Transmission Date: 20100710
  Serious: Yes (Other)
  Sender: FDA-Public Use
  Company Number: BR-JNJFOC-20081000701

PATIENT
  Sex: Female
  Weight: 58 kg

DRUGS (6)
  1. REMICADE [Suspect]
     Indication: RHEUMATOID ARTHRITIS
     Dosage: 4 TOTAL DOSES
     Route: 042
  2. FLUCONAZOLE [Concomitant]
     Indication: TINEA INFECTION
     Dosage: ^INTERRUPTED^
     Route: 048
  3. CAPTOPRIL [Concomitant]
     Indication: HYPERTENSION
     Dosage: ^12/12 HOURS^
     Route: 048
  4. DORFLEX [Concomitant]
     Indication: RHEUMATOID ARTHRITIS
     Route: 048
  5. DICLOFENAC SODIUM [Concomitant]
     Indication: RHEUMATOID ARTHRITIS
     Route: 048
  6. ARAVA [Concomitant]

REACTIONS (4)
  - INTERVERTEBRAL DISCITIS [None]
  - THROMBOCYTOPENIA [None]
  - TRANSAMINASES INCREASED [None]
  - TUBERCULOSIS [None]
